FAERS Safety Report 6785081-2 (Version None)
Quarter: 2010Q2

REPORT INFORMATION
  Report Type: 
  Country: None (occurrence: None)
  Receive Date: 20100618
  Receipt Date: 20100607
  Transmission Date: 20101027
  Serious: Yes (Death)
  Sender: FDA-Public Use
  Company Number: 1000014486

PATIENT
  Age: 51 Year
  Sex: Female

DRUGS (6)
  1. ESCITALOPRAM (ESCITALOPRAM OXALATE) (TABLETS) [Suspect]
     Indication: DEPRESSION
     Dosage: 5 MG (5 MG, 1 IN 1 D), ORAL
     Route: 048
     Dates: start: 20070201, end: 20081021
  2. SINTROM [Suspect]
     Indication: DEEP VEIN THROMBOSIS
     Dosage: ORAL
     Route: 048
     Dates: start: 20030101, end: 20081021
  3. FORTECORTIN (TABLETS) [Suspect]
     Dosage: 1 MG (1 MG, 1 IN 1 D), ORAL
     Route: 048
     Dates: start: 20071004, end: 20081021
  4. LORAMETA (TABLETS) [Suspect]
     Indication: DEPRESSION
     Dosage: 1 MG (1 MG, 1 IN 1 D), ORAL
     Route: 048
     Dates: start: 20060101, end: 20081021
  5. SERC (TABLETS) [Concomitant]
  6. OMEPRAZOL (TABLETS) [Concomitant]

REACTIONS (2)
  - CEREBELLAR HAEMATOMA [None]
  - INTERNATIONAL NORMALISED RATIO INCREASED [None]
